FAERS Safety Report 7851045-0 (Version None)
Quarter: 2011Q4

REPORT INFORMATION
  Report Type: 
  Country: None (occurrence: None)
  Receive Date: 20111024
  Receipt Date: 20111012
  Transmission Date: 20120403
  Serious: Yes (Other)
  Sender: FDA-Public Use
  Company Number: AUR-APL-2011-04952

PATIENT
  Age: 65 Year
  Sex: Male

DRUGS (5)
  1. TERBINAFINE HCL [Suspect]
     Indication: FUNGAL INFECTION
     Dosage: (250 MG, 1 D), ORAL
     Route: 048
  2. BENDROFLUMETHIAZIDE (BENDROFLUMETHIAZIDE) [Concomitant]
  3. TAMSULOSIN HCL [Concomitant]
  4. ATORVASTATIN CALCIUM [Concomitant]
  5. PERINDOPRIL ERBUMINE [Concomitant]

REACTIONS (1)
  - HEPATITIS [None]
